FAERS Safety Report 9191372 (Version 2)
Quarter: 2013Q2

REPORT INFORMATION
  Report Type: Spontaneous
  Country: JP (occurrence: JP)
  Receive Date: 20130326
  Receipt Date: 20130402
  Transmission Date: 20140414
  Serious: Yes (Life-Threatening)
  Sender: FDA-Public Use
  Company Number: JP-ABBOTT-13P-087-1068732-00

PATIENT
  Age: 0 Year
  Sex: Female
  Weight: 2 kg

DRUGS (9)
  1. SEVOFLURANE [Suspect]
     Indication: MAINTENANCE OF ANAESTHESIA
     Dosage: 1-1.2%
     Route: 055
     Dates: start: 20120507, end: 20120507
  2. MUSCULAX [Concomitant]
     Indication: HYPOTONIA
     Dosage: 0.1 MG/HR
     Route: 042
     Dates: start: 20120507
  3. FENTANYL [Concomitant]
     Indication: ANALGESIC THERAPY
     Dosage: 0.02-0.04 ML
     Route: 042
     Dates: start: 20120507, end: 20120507
  4. DORMICUM [Concomitant]
     Indication: INDUCTION OF ANAESTHESIA
     Dosage: 1.5 MG/H
     Route: 042
     Dates: start: 20120507, end: 20120507
  5. INOVAN [Concomitant]
     Indication: CARDIOVASCULAR DISORDER
     Dosage: 2 GAMMA
     Route: 042
     Dates: start: 20120507, end: 20120507
  6. MILRILA [Concomitant]
     Indication: CARDIOVASCULAR DISORDER
     Dosage: 0.5 GAMMA
     Route: 042
     Dates: start: 20120507, end: 20120507
  7. LASIX [Concomitant]
     Indication: POLYURIA
     Route: 042
     Dates: start: 20120507, end: 20120507
  8. ESLAX [Concomitant]
     Indication: HYPOTONIA
     Route: 042
     Dates: start: 20120507, end: 20120507
  9. OXYGEN [Concomitant]
     Indication: ANAESTHESIA

REACTIONS (2)
  - Hyperkalaemia [Unknown]
  - Urine output decreased [Unknown]
